FAERS Safety Report 8231861-6 (Version None)
Quarter: 2012Q1

REPORT INFORMATION
  Report Type: 
  Country: None (occurrence: None)
  Receive Date: 20120323
  Receipt Date: 20120313
  Transmission Date: 20120608
  Serious: Yes (Death)
  Sender: FDA-Public Use
  Company Number: US-ROCHE-1047286

PATIENT
  Sex: Male

DRUGS (10)
  1. OXALIPLATIN [Concomitant]
  2. DEXAMETHASONE [Concomitant]
     Dosage: WITH CHEMOTHERAPY
  3. DOCUSATE SODIUM [Concomitant]
     Dosage: AS REQUIRED
     Route: 048
  4. XELODA [Suspect]
     Indication: COLON CANCER
     Dosage: (21 DAYS CYCLE, 14 DAYS ON AND 7 DAYS OFF)
  5. MULTIPLE VITAMIN [Concomitant]
     Route: 048
  6. HYDROCODONE BITARTRATE AND ACETAMINOPHEN [Concomitant]
     Dosage: 5-500MG AS REQUIRED,QID
  7. PROCHLORPERAZINE MALEATE [Concomitant]
     Dosage: AS REQUIRED
  8. ONDANSETRON [Concomitant]
     Dosage: AS REQUIRED
  9. AVASTIN [Suspect]
     Indication: COLON CANCER
  10. FERROUS GLUCONATE [Concomitant]
     Route: 048

REACTIONS (1)
  - METASTATIC NEOPLASM [None]
